FAERS Safety Report 25973773 (Version 1)
Quarter: 2025Q4

REPORT INFORMATION
  Report Type: Spontaneous
  Country: CN (occurrence: None)
  Receive Date: 20251029
  Receipt Date: 20251029
  Transmission Date: 20260118
  Serious: Yes (Other)
  Sender: ADIENNE PHARMA & BIOTECH
  Company Number: CN-ADIENNEP-2025AD000821

PATIENT
  Sex: Male

DRUGS (12)
  1. THIOTEPA [Suspect]
     Active Substance: THIOTEPA
     Indication: Allogenic stem cell transplantation
     Dosage: 5 MG/KG PER DOSE, -6 D, Q12H
  2. BUSULFAN [Suspect]
     Active Substance: BUSULFAN
     Indication: Allogenic stem cell transplantation
     Dosage: 1.2 MG/KG PER DOSE, Q6H, IV (-9 D TO -7 D)
     Route: 042
  3. CYCLOPHOSPHAMIDE [Suspect]
     Active Substance: CYCLOPHOSPHAMIDE
     Indication: Allogenic stem cell transplantation
     Dosage: 25 MG/KG PER DAY, IV, 4 D (-5 D TO -2 D)
     Route: 042
  4. THYMOCYTE IMMUNE GLOBULIN NOS [Suspect]
     Active Substance: THYMOCYTE IMMUNE GLOBULIN NOS
     Indication: Allogenic stem cell transplantation
     Dosage: (4.5 MG/KG) FOR 3 CONSECUTIVE DAYS (-3 D TO -1D)
  5. CYCLOPHOSPHAMIDE [Suspect]
     Active Substance: CYCLOPHOSPHAMIDE
     Indication: Allogenic stem cell transplantation
     Dosage: 10 MG/ KG DAILY ON DAY + 3
  6. CYCLOSPORINE [Suspect]
     Active Substance: CYCLOSPORINE
     Indication: Prophylaxis against graft versus host disease
     Dosage: 1.5 MG/KG PER DAY IV (-9 D TO -2 D)
     Route: 042
  7. MYCOPHENOLATE MOFETIL [Suspect]
     Active Substance: MYCOPHENOLATE MOFETIL
     Indication: Prophylaxis against graft versus host disease
     Dosage: STARTED AT 30 MG/KG DAILY (-9 D TO + 30 D)
  8. CYCLOSPORINE [Suspect]
     Active Substance: CYCLOSPORINE
     Indication: Prophylaxis against graft versus host disease
     Dosage: 3 MG/KG DAY FROM DAY -1
     Route: 042
  9. METHOTREXATE [Suspect]
     Active Substance: METHOTREXATE
     Indication: Prophylaxis against graft versus host disease
     Dosage: ON D1 (15 MG/M2), D3 (10 MG/M2), AND D6 (10 MG/M2)
  10. METHOTREXATE [Suspect]
     Active Substance: METHOTREXATE
     Indication: Prophylaxis against graft versus host disease
     Dosage: ON D1 (15 MG/M2), D3 (10 MG/M2), AND D6 (10 MG/M2)
  11. METHOTREXATE [Suspect]
     Active Substance: METHOTREXATE
     Indication: Prophylaxis against graft versus host disease
     Dosage: ON D1 (15 MG/M2), D3 (10 MG/M2), AND D6 (10 MG/M2)
  12. BASILIXIMAB [Suspect]
     Active Substance: BASILIXIMAB
     Indication: Prophylaxis against graft versus host disease
     Dosage: ADDED ON DAY 4 ()

REACTIONS (5)
  - Pyrexia [Unknown]
  - Lymph node tuberculosis [Unknown]
  - Haemoglobin decreased [Unknown]
  - Disseminated Bacillus Calmette-Guerin infection [Unknown]
  - Acute graft versus host disease in skin [Unknown]
